FAERS Safety Report 6983900-8 (Version None)
Quarter: 2010Q3

REPORT INFORMATION
  Report Type: 
  Country: None (occurrence: None)
  Receive Date: 20100914
  Receipt Date: 20090417
  Transmission Date: 20110219
  Serious: No
  Sender: FDA-Public Use
  Company Number: US-WYE-H09039609

PATIENT
  Age: 63 Year
  Sex: Female
  Weight: 86.26 kg

DRUGS (3)
  1. ADVIL LIQUI-GELS [Suspect]
     Indication: BACK PAIN
     Route: 048
     Dates: start: 20090404, end: 20090406
  2. METOPROLOL TARTRATE [Concomitant]
  3. LISINOPRIL [Concomitant]

REACTIONS (3)
  - CONDITION AGGRAVATED [None]
  - HYPERTENSION [None]
  - OVERDOSE [None]
